FAERS Safety Report 15358318 (Version 1)
Quarter: 2018Q3

REPORT INFORMATION
  Report Type: Spontaneous
  Country: US (occurrence: US)
  Receive Date: 20180906
  Receipt Date: 20180906
  Transmission Date: 20181010
  Serious: No
  Sender: FDA-Public Use
  Company Number: US-PERRIGO-18US004454

PATIENT
  Sex: Female
  Weight: 61.22 kg

DRUGS (2)
  1. EVAMIST [Suspect]
     Active Substance: ESTRADIOL
     Indication: OESTROGEN REPLACEMENT THERAPY
     Dosage: 3.06 MG, QD
     Route: 062
     Dates: start: 201712, end: 2018
  2. EVAMIST [Suspect]
     Active Substance: ESTRADIOL
     Dosage: 1 SPRAY (UNKNOWN MG), QD
     Route: 062
     Dates: start: 2018, end: 20180416

REACTIONS (1)
  - Incorrect dose administered [Recovered/Resolved]

NARRATIVE: CASE EVENT DATE: 2018
